FAERS Safety Report 5406740-X (Version None)
Quarter: 2007Q3

REPORT INFORMATION
  Report Type: 
  Country: None (occurrence: None)
  Receive Date: 20070802
  Receipt Date: 20070717
  Transmission Date: 20080115
  Serious: Yes (Other)
  Sender: FDA-Public Use
  Company Number: ACO_00367_2007

PATIENT
  Age: 31 Year
  Sex: Male

DRUGS (1)
  1. SIRDALUD (SIRDALUD - TIZANIDINE HYDROCHLORIDE) 2 MG (NOT SPECIFIED) [Suspect]
     Indication: DRUG USE FOR UNKNOWN INDICATION
     Dosage: 1 TABLET AT BREAKFAST AND 2 TABLETS AT LUNCH AND DINNER

REACTIONS (8)
  - ABNORMAL BEHAVIOUR [None]
  - AGGRESSION [None]
  - DEPRESSED LEVEL OF CONSCIOUSNESS [None]
  - EMOTIONAL DISORDER [None]
  - FALL [None]
  - MOUTH INJURY [None]
  - SOCIAL AVOIDANT BEHAVIOUR [None]
  - SYNCOPE [None]
